FAERS Safety Report 4698616-0 (Version None)
Quarter: 2005Q2

REPORT INFORMATION
  Report Type: 
  Country: None (occurrence: None)
  Receive Date: 20050622
  Receipt Date: 20050610
  Transmission Date: 20051028
  Serious: Yes (Other)
  Sender: FDA-Public Use
  Company Number: MYVW-PR-0506S-0028

PATIENT
  Age: 42 Year
  Sex: Male

DRUGS (8)
  1. MYOVIEW [Suspect]
     Indication: CORONARY ARTERY DISEASE
     Dosage: 407 MBQ, SINGLE, DOSE, I.V.
     Route: 042
     Dates: start: 20050609, end: 20050609
  2. TECHNETIUM (TC99M) GENERATOR (MANF. [Concomitant]
  3. ASPIRIN [Concomitant]
  4. PANTOPRAZOLE (PROTONIX) [Concomitant]
  5. PLAVIX [Concomitant]
  6. LIPITOR [Concomitant]
  7. ALTACE [Concomitant]
  8. ONDANSETRON HCL [Concomitant]

REACTIONS (7)
  - ASTHENIA [None]
  - CONVULSION [None]
  - FATIGUE [None]
  - HYPERHIDROSIS [None]
  - NAUSEA [None]
  - SYNCOPE [None]
  - VOMITING [None]
